FAERS Safety Report 6807269-4 (Version None)
Quarter: 2010Q2

REPORT INFORMATION
  Report Type: 
  Country: None (occurrence: None)
  Receive Date: 20100629
  Receipt Date: 20080926
  Transmission Date: 20101027
  Serious: Yes (Other)
  Sender: FDA-Public Use
  Company Number: US-PFIZER INC-2008063445

PATIENT
  Sex: Female
  Weight: 79.09 kg

DRUGS (4)
  1. ARTHROTEC [Suspect]
     Indication: OSTEOARTHRITIS
     Dates: start: 20080701, end: 20080701
  2. MAXZIDE [Concomitant]
  3. POTASSIUM [Concomitant]
  4. TRAMADOL HCL [Concomitant]

REACTIONS (1)
  - ALLERGIC OEDEMA [None]
